FAERS Safety Report 6488049-9 (Version None)
Quarter: 2009Q4

REPORT INFORMATION
  Report Type: 
  Country: None (occurrence: None)
  Receive Date: 20091210
  Receipt Date: 20091201
  Transmission Date: 20100525
  Serious: Yes (Hospitalization)
  Sender: FDA-Public Use
  Company Number: JP-MERCK-0912USA00446

PATIENT
  Age: 68 Year
  Sex: Female

DRUGS (2)
  1. TIMOPTIC [Suspect]
     Indication: INTRAOCULAR PRESSURE INCREASED
     Dosage: ONE DROP IN EACH EYE
     Route: 047
     Dates: start: 20030101
  2. XALATAN [Concomitant]
     Dosage: ONE DROP IN EACH EYE
     Route: 047

REACTIONS (4)
  - BRAIN STEM HAEMORRHAGE [None]
  - CEREBRAL HAEMORRHAGE [None]
  - PYREXIA [None]
  - SYNCOPE [None]
